FAERS Safety Report 21824711 (Version 2)
Quarter: 2023Q1

REPORT INFORMATION
  Report Type: Spontaneous
  Country: DE (occurrence: DE)
  Receive Date: 20230105
  Receipt Date: 20230111
  Transmission Date: 20230418
  Serious: Yes (Other)
  Sender: FDA-Public Use
  Company Number: DE-RECORDATI-2022006771

PATIENT
  Sex: Male

DRUGS (5)
  1. CARIPRAZINE HYDROCHLORIDE [Suspect]
     Active Substance: CARIPRAZINE HYDROCHLORIDE
     Indication: Product used for unknown indication
     Dosage: 1.5 MG
     Route: 048
     Dates: start: 20220909, end: 20220912
  2. OLANZAPINE [Concomitant]
     Active Substance: OLANZAPINE
     Indication: Product used for unknown indication
     Dosage: 20 MG
     Route: 048
     Dates: start: 20220913
  3. OLANZAPINE [Concomitant]
     Active Substance: OLANZAPINE
     Dosage: 10 MG
     Route: 048
     Dates: start: 20220909, end: 20220912
  4. OLANZAPINE [Concomitant]
     Active Substance: OLANZAPINE
     Dosage: 20 MG
     Route: 048
     Dates: end: 20220908
  5. FOLIC ACID [Concomitant]
     Active Substance: FOLIC ACID
     Indication: Product used for unknown indication
     Dosage: 10 MG, QD
     Route: 048
     Dates: start: 20220908

REACTIONS (8)
  - Hallucination [Recovered/Resolved]
  - Delusion [Recovered/Resolved]
  - Thinking abnormal [Recovered/Resolved]
  - Condition aggravated [Recovered/Resolved]
  - Psychomotor hyperactivity [Recovered/Resolved]
  - Psychomotor hyperactivity [Recovered/Resolved]
  - Schizophrenia [Recovered/Resolved]
  - Restlessness [Recovered/Resolved]

NARRATIVE: CASE EVENT DATE: 20220911
